FAERS Safety Report 24297342 (Version 1)
Quarter: 2024Q3

REPORT INFORMATION
  Report Type: Spontaneous
  Country: US (occurrence: None)
  Receive Date: 20240906
  Receipt Date: 20240906
  Transmission Date: 20241017
  Serious: Yes (Life-Threatening, Hospitalization)
  Sender: Public
  Company Number: None

PATIENT
  Age: 76 Year
  Sex: Female
  Weight: 81.3 kg

DRUGS (1)
  1. ABECMA [Suspect]
     Active Substance: IDECABTAGENE VICLEUCEL
     Indication: Plasma cell myeloma
     Dosage: 83.81 ML ONCE INTRAVENOUS DRIP
     Route: 041
     Dates: start: 20240813, end: 20240813

REACTIONS (4)
  - Cytokine release syndrome [None]
  - Immune effector cell-associated neurotoxicity syndrome [None]
  - Intervertebral disc protrusion [None]
  - Lumbar spinal stenosis [None]

NARRATIVE: CASE EVENT DATE: 20240814
